FAERS Safety Report 8421795-6 (Version None)
Quarter: 2012Q2

REPORT INFORMATION
  Report Type: 
  Country: None (occurrence: None)
  Receive Date: 20120608
  Receipt Date: 20120530
  Transmission Date: 20120825
  Serious: Yes (Hospitalization)
  Sender: FDA-Public Use
  Company Number: US-ALLERGAN-1207618US

PATIENT
  Sex: Female

DRUGS (1)
  1. BOTULINUM TOXIN TYPE A [Suspect]
     Indication: PRODUCT USED FOR UNKNOWN INDICATION
     Dosage: 40 UNITS, SINGLE
     Dates: start: 20120504, end: 20120504

REACTIONS (4)
  - SPEECH DISORDER [None]
  - FACIAL PARESIS [None]
  - HEADACHE [None]
  - HYPOAESTHESIA [None]
